FAERS Safety Report 7284267-0 (Version None)
Quarter: 2011Q1

REPORT INFORMATION
  Report Type: 
  Country: None (occurrence: None)
  Receive Date: 20110209
  Receipt Date: 20110209
  Transmission Date: 20110831
  Serious: Yes (Death, Hospitalization)
  Sender: FDA-Public Use
  Company Number: US-PFIZER INC-2011016773

PATIENT
  Sex: Male
  Weight: 55 kg

DRUGS (12)
  1. NORMAL SALINE [Concomitant]
  2. AZITHROMYCIN [Concomitant]
  3. PROMETHAZINE [Concomitant]
     Dosage: 25 MG, UNK
     Route: 048
  4. GLIMEPIRIDE [Concomitant]
     Dosage: 4 MG, UNK
     Route: 048
  5. LEVOTHYROXINE [Concomitant]
     Dosage: 175 UG, UNK
     Route: 048
  6. SUNITINIB MALATE [Suspect]
     Indication: OESOPHAGEAL CANCER METASTATIC
     Dosage: 25MG +12.5MG, 1X/DAY
     Route: 048
     Dates: start: 20101124, end: 20110102
  7. NORCO [Concomitant]
     Dosage: 5-325 MG, UNK
     Route: 048
  8. HEPARIN [Concomitant]
     Dosage: 100 IU/ML, UNK
     Route: 042
  9. PREVACID [Concomitant]
     Dosage: 30 MG, UNK
     Route: 048
  10. TEMAZEPAM [Concomitant]
     Dosage: 30 MG, UNK
     Route: 048
  11. PROTONIX [Concomitant]
     Dosage: 40 MG, UNK
     Route: 048
  12. LORAZEPAM [Concomitant]
     Dosage: 1 MG, UNK
     Route: 048

REACTIONS (10)
  - NEOPLASM MALIGNANT [None]
  - BACTERIAL INFECTION [None]
  - PNEUMONIA [None]
  - OESOPHAGEAL CANCER METASTATIC [None]
  - HYPOPROTEINAEMIA [None]
  - FUNGAL INFECTION [None]
  - PULMONARY CONGESTION [None]
  - ANTIBIOTIC RESISTANT STAPHYLOCOCCUS TEST POSITIVE [None]
  - SPUTUM CULTURE POSITIVE [None]
  - DISEASE PROGRESSION [None]
